FAERS Safety Report 8306195-1 (Version None)
Quarter: 2012Q2

REPORT INFORMATION
  Report Type: 
  Country: None (occurrence: None)
  Receive Date: 20120423
  Receipt Date: 20120413
  Transmission Date: 20120825
  Serious: Yes (Hospitalization)
  Sender: FDA-Public Use
  Company Number: US-ABBOTT-12P-163-0925526-00

PATIENT
  Sex: Female
  Weight: 61.29 kg

DRUGS (14)
  1. DARVOCET-N 100 [Concomitant]
     Indication: PRODUCT USED FOR UNKNOWN INDICATION
  2. TRAMADOL HCL [Concomitant]
     Dates: start: 20120301
  3. SULFASALAZINE [Concomitant]
     Indication: RHEUMATOID ARTHRITIS
  4. PLAQUENIL [Concomitant]
     Indication: PRODUCT USED FOR UNKNOWN INDICATION
  5. TRAMADOL HCL [Concomitant]
     Indication: RHEUMATOID ARTHRITIS
     Dates: start: 20120101
  6. HUMIRA [Suspect]
     Indication: RHEUMATOID ARTHRITIS
     Route: 058
     Dates: start: 20100101, end: 20111201
  7. ARAVA [Concomitant]
     Indication: RHEUMATOID ARTHRITIS
     Dates: start: 19860101, end: 20111201
  8. PREMARIN [Suspect]
     Indication: MENOPAUSE
  9. NEXIUM [Concomitant]
     Indication: PRODUCT USED FOR UNKNOWN INDICATION
  10. LODINE [Concomitant]
     Indication: RHEUMATOID ARTHRITIS
  11. ROBAXIN [Concomitant]
     Indication: PRODUCT USED FOR UNKNOWN INDICATION
  12. ASCORBIC ACID [Concomitant]
     Indication: PRODUCT USED FOR UNKNOWN INDICATION
  13. CALCIUM [Concomitant]
     Indication: OSTEOPOROSIS
  14. HUMIRA [Suspect]
     Dates: start: 20120301

REACTIONS (14)
  - PARAESTHESIA [None]
  - PLEURAL EFFUSION [None]
  - HYPOAESTHESIA [None]
  - PULMONARY OEDEMA [None]
  - ARTERIAL THROMBOSIS LIMB [None]
  - PAIN IN EXTREMITY [None]
  - PYREXIA [None]
  - DYSPNOEA [None]
  - CONTUSION [None]
  - SENSORY LOSS [None]
  - PNEUMONIA [None]
  - RENAL FAILURE [None]
  - ABDOMINAL PAIN [None]
  - WHITE BLOOD CELL COUNT INCREASED [None]
